FAERS Safety Report 19028167 (Version 2)
Quarter: 2023Q4

REPORT INFORMATION
  Report Type: Report from Study
  Country: US (occurrence: US)
  Receive Date: 20210318
  Receipt Date: 20231031
  Transmission Date: 20240110
  Serious: Yes (Hospitalization)
  Sender: FDA-Public Use
  Company Number: US-TAKEDA-US201608493

PATIENT
  Age: 69 Year
  Sex: Female
  Weight: 57 kg

DRUGS (17)
  1. TEDUGLUTIDE [Suspect]
     Active Substance: TEDUGLUTIDE
     Indication: Short-bowel syndrome
     Dosage: 2.8 MILLIGRAM, QD
     Route: 058
     Dates: start: 20150409, end: 20160820
  2. TEDUGLUTIDE [Suspect]
     Active Substance: TEDUGLUTIDE
     Indication: Short-bowel syndrome
     Dosage: 2.8 MILLIGRAM, QD
     Route: 058
     Dates: start: 20150409, end: 20160820
  3. TEDUGLUTIDE [Suspect]
     Active Substance: TEDUGLUTIDE
     Indication: Short-bowel syndrome
     Dosage: 2.8 MILLIGRAM, QD
     Route: 058
     Dates: start: 20150409, end: 20160820
  4. TEDUGLUTIDE [Suspect]
     Active Substance: TEDUGLUTIDE
     Indication: Short-bowel syndrome
     Dosage: 2.8 MILLIGRAM, QD
     Route: 058
     Dates: start: 20150409, end: 20160820
  5. OPIUM TINCTURE [Concomitant]
     Active Substance: MORPHINE
     Indication: Product used for unknown indication
     Dosage: 0.6 ML, 2X/DAY:BID
     Route: 048
     Dates: start: 201503
  6. ZOFRAN [Concomitant]
     Active Substance: ONDANSETRON HYDROCHLORIDE
     Indication: Product used for unknown indication
     Dosage: 4 MG, 2X/DAY:BID
     Route: 048
     Dates: start: 201501
  7. LOMOTIL [Concomitant]
     Active Substance: ATROPINE SULFATE\DIPHENOXYLATE HYDROCHLORIDE
     Indication: Product used for unknown indication
     Dosage: 2.5 MG, 1X/DAY:QD
     Route: 048
  8. CANASA [Concomitant]
     Active Substance: MESALAMINE
     Indication: Product used for unknown indication
     Dosage: 1000 MG, 1X/DAY:QD
     Route: 054
     Dates: start: 201412
  9. FENTANYL [Concomitant]
     Active Substance: FENTANYL\FENTANYL CITRATE
     Indication: Product used for unknown indication
     Dosage: 75 ?G, UNKNOWN
     Route: 062
  10. LOPERAMIDE HYDROCHLORIDE [Concomitant]
     Active Substance: LOPERAMIDE HYDROCHLORIDE
     Indication: Product used for unknown indication
     Dosage: 2 MG, UNKNOWN
     Route: 048
     Dates: start: 201503
  11. VITAMIN D [Concomitant]
     Active Substance: VITAMIN D NOS
     Indication: Product used for unknown indication
     Dosage: 1000 IU, 1X/DAY:QD
     Route: 048
     Dates: start: 201506
  12. LEVAQUIN [Concomitant]
     Active Substance: LEVOFLOXACIN
     Indication: Product used for unknown indication
     Dosage: 500 MG, UNKNOWN
     Route: 048
  13. CALCIUM [Concomitant]
     Active Substance: CALCIUM
     Indication: Product used for unknown indication
     Dosage: 600 MG, UNKNOWN
     Route: 048
     Dates: start: 201508
  14. DAPTOMYCIN [Concomitant]
     Active Substance: DAPTOMYCIN
     Indication: Sepsis
     Dosage: 350.0 MILLIGRAM, QD
     Route: 058
     Dates: start: 20180924
  15. SODIUM CHLORIDE [Concomitant]
     Active Substance: SODIUM CHLORIDE
     Indication: Nutritional supplementation
     Dosage: 1647 MILLIGRAM, SINGLE
     Route: 042
     Dates: start: 20180917, end: 20180917
  16. AZITHROMYCIN [Concomitant]
     Active Substance: AZITHROMYCIN
     Dosage: 500 MILLIGRAM, SINGLE
     Route: 042
     Dates: start: 20180917, end: 20180917
  17. CEFTRIAXONE [Concomitant]
     Active Substance: CEFTRIAXONE\CEFTRIAXONE SODIUM
     Indication: Sepsis
     Dosage: 1 GRAM, SINGLE
     Route: 042
     Dates: start: 20180917, end: 20180917

REACTIONS (1)
  - Dehydration [Recovered/Resolved]

NARRATIVE: CASE EVENT DATE: 20160404
